FAERS Safety Report 4757524-7 (Version None)
Quarter: 2005Q3

REPORT INFORMATION
  Report Type: 
  Country: None (occurrence: None)
  Receive Date: 20050831
  Receipt Date: 20050823
  Transmission Date: 20060218
  Serious: Yes (Disabling, Other)
  Sender: FDA-Public Use
  Company Number: PHEH2005US09413

PATIENT
  Age: 59 Year
  Sex: Female

DRUGS (1)
  1. VIVELLE-DOT [Suspect]
     Indication: OSTEOPOROSIS
     Dosage: 0.025 MG/DAY, BIW
     Route: 062
     Dates: start: 20000101, end: 20050801

REACTIONS (6)
  - ABDOMINAL PAIN [None]
  - BILIRUBINURIA [None]
  - GALLBLADDER DISORDER [None]
  - HEPATOBILIARY DISEASE [None]
  - LIVER FUNCTION TEST ABNORMAL [None]
  - PAIN [None]
